FAERS Safety Report 6899092-X (Version None)
Quarter: 2010Q3

REPORT INFORMATION
  Report Type: 
  Country: None (occurrence: None)
  Receive Date: 20100802
  Receipt Date: 20071231
  Transmission Date: 20110219
  Serious: No
  Sender: FDA-Public Use
  Company Number: US-PFIZER INC-2007078992

PATIENT
  Sex: Female

DRUGS (3)
  1. LYRICA [Suspect]
     Indication: FIBROMYALGIA
  2. SOMA [Interacting]
     Indication: FIBROMYALGIA
  3. ATIVAN [Interacting]

REACTIONS (3)
  - DIZZINESS [None]
  - DRUG INTERACTION [None]
  - SOMNOLENCE [None]
